FAERS Safety Report 9236714 (Version 2)
Quarter: 2014Q1

REPORT INFORMATION
  Report Type: Report from Study
  Country: TW (occurrence: TW)
  Receive Date: 20130417
  Receipt Date: 20140321
  Transmission Date: 20141002
  Serious: Yes (Other)
  Sender: FDA-Public Use
  Company Number: TW-ROCHE-1211609

PATIENT
  Age: 39 Year
  Sex: Male
  Weight: 76 kg

DRUGS (9)
  1. PEG-INTERFERON ALFA 2A [Suspect]
     Indication: CHRONIC HEPATITIS B
     Route: 058
     Dates: start: 20121011, end: 20130911
  2. CARTEOLOL [Concomitant]
     Route: 065
     Dates: start: 20121019
  3. FLUDIAZEPAM [Concomitant]
     Route: 065
     Dates: start: 20121206
  4. DOMPERIDONE [Concomitant]
     Route: 065
     Dates: start: 20121206
  5. HYDROXYPROPYL METHYLCELLULOSE [Concomitant]
     Route: 065
     Dates: start: 20121116
  6. PROPYLTHIOURACIL [Concomitant]
     Route: 065
     Dates: start: 20130814, end: 20140109
  7. ELTROXIN [Concomitant]
     Route: 065
     Dates: start: 20130913, end: 20140109
  8. PROPRANOLOL [Concomitant]
  9. CARBIMAZOLE [Concomitant]

REACTIONS (1)
  - Hepatitis [Recovered/Resolved]
